FAERS Safety Report 7577000-6 (Version None)
Quarter: 2011Q2

REPORT INFORMATION
  Report Type: 
  Country: None (occurrence: None)
  Receive Date: 20110628
  Receipt Date: 20110623
  Transmission Date: 20111010
  Serious: Yes (Death, Hospitalization, Other)
  Sender: FDA-Public Use
  Company Number: US-AMGEN-USASP2011003069

PATIENT
  Age: 96 Year
  Sex: Female

DRUGS (3)
  1. NPLATE [Suspect]
     Indication: IDIOPATHIC THROMBOCYTOPENIC PURPURA
     Dates: start: 20101122
  2. PREDNISONE [Concomitant]
     Dosage: 20 MG, UNK
  3. CORTICOSTEROIDS [Concomitant]
     Indication: IDIOPATHIC THROMBOCYTOPENIC PURPURA

REACTIONS (11)
  - DEHYDRATION [None]
  - BACK PAIN [None]
  - DEATH [None]
  - HYPOPHAGIA [None]
  - SKIN INJURY [None]
  - ECCHYMOSIS [None]
  - RENAL FAILURE ACUTE [None]
  - DECREASED APPETITE [None]
  - CEREBROVASCULAR ACCIDENT [None]
  - OEDEMA [None]
  - THROMBOCYTOPENIA [None]
